FAERS Safety Report 17911425 (Version 1)
Quarter: 2020Q2

REPORT INFORMATION
  Report Type: Spontaneous
  Country: ES (occurrence: ES)
  Receive Date: 20200618
  Receipt Date: 20200618
  Transmission Date: 20200714
  Serious: Yes (Hospitalization)
  Sender: FDA-Public Use
  Company Number: ES-ACCORD-185545

PATIENT
  Age: 76 Year
  Sex: Female

DRUGS (2)
  1. IMUREL [Suspect]
     Active Substance: AZATHIOPRINE SODIUM
     Indication: POLYSEROSITIS
     Dosage: STRENGTH: 50 MG, 50 TABLETS, 1-0-0
     Route: 048
     Dates: start: 20200330, end: 20200522
  2. HYDROXYCHLOROQUINE [Suspect]
     Active Substance: HYDROXYCHLOROQUINE
     Indication: POLYSEROSITIS
     Dosage: 200 MG (1-0-0,5)
     Route: 048
     Dates: start: 20200213

REACTIONS (2)
  - Hepatitis [Recovering/Resolving]
  - Off label use [Unknown]

NARRATIVE: CASE EVENT DATE: 20200522
